FAERS Safety Report 24444561 (Version 2)
Quarter: 2024Q4

REPORT INFORMATION
  Report Type: Report from Study
  Country: US (occurrence: US)
  Receive Date: 20241016
  Receipt Date: 20241017
  Transmission Date: 20250114
  Serious: No
  Sender: ROCHE
  Company Number: US-ROCHE-2797670

PATIENT
  Age: 54 Year
  Sex: Female

DRUGS (8)
  1. RITUXAN [Suspect]
     Active Substance: RITUXIMAB
     Indication: Chronic inflammatory demyelinating polyradiculoneuropathy
     Dosage: ONCE IN 14 DAYS FOR 7 DAYS THEN REPEAT ONCE IN 6 MONTHS?LAST DOSE ADMINISTERED ON 25/SEP/2023
     Route: 041
     Dates: start: 20230329
  2. RITUXAN [Suspect]
     Active Substance: RITUXIMAB
     Dosage: ONCE IN 14 DAYS FOR 7 DAYS THEN REPEAT ONCE IN 6 MONTHS?LAST DOSE ADMINISTERED ON 25/SEP/2023
     Route: 041
     Dates: start: 20230525
  3. GABAPENTIN [Concomitant]
     Active Substance: GABAPENTIN
  4. FIORICET [Concomitant]
     Active Substance: ACETAMINOPHEN\BUTALBITAL\CAFFEINE
  5. DULOXETINE [Concomitant]
     Active Substance: DULOXETINE
  6. ATORVASTATIN [Concomitant]
     Active Substance: ATORVASTATIN
  7. ANASTROZOLE [Concomitant]
     Active Substance: ANASTROZOLE
  8. HYDROCHLOROTHIAZIDE [Concomitant]
     Active Substance: HYDROCHLOROTHIAZIDE

REACTIONS (2)
  - Off label use [Unknown]
  - No adverse event [Unknown]
